FAERS Safety Report 6165750-8 (Version None)
Quarter: 2009Q2

REPORT INFORMATION
  Report Type: 
  Country: None (occurrence: None)
  Receive Date: 20090423
  Receipt Date: 20090413
  Transmission Date: 20091009
  Serious: Yes (Death, Life-Threatening, Other)
  Sender: FDA-Public Use
  Company Number: US-BAXTER-2008BH000944

PATIENT
  Age: 69 Year
  Sex: Female
  Weight: 83 kg

DRUGS (31)
  1. HEPARIN SODIUM INJECTION [Suspect]
     Indication: PROPHYLAXIS
     Route: 033
     Dates: start: 20070501
  2. HEPARIN SODIUM INJECTION [Suspect]
     Indication: PERITONEAL DIALYSIS
     Route: 033
     Dates: start: 20070501
  3. HEPARIN SODIUM INJECTION [Suspect]
     Route: 033
     Dates: start: 20080117, end: 20080117
  4. HEPARIN SODIUM INJECTION [Suspect]
     Route: 033
     Dates: start: 20080117, end: 20080117
  5. HEPARIN SODIUM INJECTION [Suspect]
     Route: 033
     Dates: start: 20080110, end: 20080110
  6. HEPARIN SODIUM INJECTION [Suspect]
     Route: 033
     Dates: start: 20080110, end: 20080110
  7. HEPARIN SODIUM INJECTION [Suspect]
     Route: 033
     Dates: start: 20080121, end: 20080121
  8. HEPARIN SODIUM INJECTION [Suspect]
     Route: 033
     Dates: start: 20080121, end: 20080121
  9. HEPARIN SODIUM INJECTION [Suspect]
     Route: 033
     Dates: start: 20080124, end: 20080201
  10. HEPARIN SODIUM INJECTION [Suspect]
     Route: 033
     Dates: start: 20080124, end: 20080201
  11. HEPARIN SODIUM INJECTION [Suspect]
     Route: 033
     Dates: start: 20080114, end: 20080114
  12. HEPARIN SODIUM INJECTION [Suspect]
     Route: 033
     Dates: start: 20080114, end: 20080114
  13. ASPIRIN [Concomitant]
     Indication: DRUG USE FOR UNKNOWN INDICATION
     Route: 065
     Dates: start: 19920101
  14. ALTACE [Concomitant]
     Indication: DRUG USE FOR UNKNOWN INDICATION
     Route: 048
  15. RAMIPRIL [Concomitant]
     Indication: DRUG USE FOR UNKNOWN INDICATION
     Route: 048
  16. FUROSEMIDE [Concomitant]
     Indication: DRUG USE FOR UNKNOWN INDICATION
     Route: 048
  17. LIPITOR [Concomitant]
     Indication: DRUG USE FOR UNKNOWN INDICATION
     Route: 065
  18. PANTOPRAZOLE SODIUM [Concomitant]
     Indication: DRUG USE FOR UNKNOWN INDICATION
     Route: 065
  19. PHOSLO [Concomitant]
     Indication: DRUG USE FOR UNKNOWN INDICATION
     Route: 048
  20. GABAPENTIN [Concomitant]
     Indication: DRUG USE FOR UNKNOWN INDICATION
     Route: 048
  21. SPIRIVA [Concomitant]
     Indication: DRUG USE FOR UNKNOWN INDICATION
     Route: 048
  22. PLAVIX [Concomitant]
     Indication: DRUG USE FOR UNKNOWN INDICATION
     Route: 048
  23. RENAL CAPS [Concomitant]
     Indication: DRUG USE FOR UNKNOWN INDICATION
     Route: 048
  24. LASIX [Concomitant]
     Indication: DRUG USE FOR UNKNOWN INDICATION
     Route: 048
  25. IRON [Concomitant]
     Indication: DRUG USE FOR UNKNOWN INDICATION
     Route: 065
  26. PROTONIX [Concomitant]
     Indication: DYSPEPSIA
     Route: 048
  27. STOOL SOFTENER [Concomitant]
     Indication: DRUG USE FOR UNKNOWN INDICATION
     Route: 065
  28. AMOXICILLIN [Concomitant]
     Indication: DRUG USE FOR UNKNOWN INDICATION
     Route: 065
  29. EPOGEN [Concomitant]
     Indication: DRUG USE FOR UNKNOWN INDICATION
     Route: 065
  30. PHOSLO [Concomitant]
     Route: 048
  31. LIPITOR [Concomitant]
     Route: 065

REACTIONS (24)
  - ABDOMINAL DISCOMFORT [None]
  - ABDOMINAL PAIN [None]
  - ANXIETY [None]
  - CARDIAC ARREST [None]
  - CIRCULATORY COLLAPSE [None]
  - DIARRHOEA [None]
  - DIZZINESS [None]
  - DYSPHAGIA [None]
  - DYSPNOEA [None]
  - FATIGUE [None]
  - HEART RATE INCREASED [None]
  - HYPERTENSION [None]
  - LOSS OF CONSCIOUSNESS [None]
  - MALAISE [None]
  - NAUSEA [None]
  - NERVOUSNESS [None]
  - PAIN [None]
  - RESPIRATORY ARREST [None]
  - RESTLESSNESS [None]
  - RETCHING [None]
  - THIRST [None]
  - UNRESPONSIVE TO STIMULI [None]
  - VOMITING [None]
  - WHEEZING [None]
